FAERS Safety Report 7081473-5 (Version None)
Quarter: 2010Q4

REPORT INFORMATION
  Report Type: 
  Country: None (occurrence: None)
  Receive Date: 20101103
  Receipt Date: 20101027
  Transmission Date: 20110411
  Serious: Yes (Hospitalization)
  Sender: FDA-Public Use
  Company Number: GXBR2010US01781

PATIENT
  Sex: Female

DRUGS (12)
  1. LORAZEPAM [Suspect]
     Indication: ANXIETY
     Dosage: 0.5 MG, BID
     Route: 048
     Dates: start: 20091223, end: 20100101
  2. SINEMET [Suspect]
     Indication: PARKINSON'S DISEASE
     Dosage: CONTINUOUS PEG J INFUSION
     Dates: start: 20091110, end: 20100104
  3. SINEMET [Suspect]
     Dosage: CONTINUOUS PEG J INFUSION
     Dates: start: 20100106
  4. TRAVATAN [Concomitant]
     Dosage: 1 GTT, QHS
     Route: 047
     Dates: start: 20060101
  5. FENOFIBRATE [Concomitant]
     Dosage: UNK
     Dates: start: 20070101
  6. ALLOPURINOL [Concomitant]
     Dosage: 300 MG, QD
     Dates: start: 19790101
  7. SERTRALINE HYDROCHLORIDE [Concomitant]
     Dosage: 100 MG, QD
     Dates: start: 19990101
  8. OMEPRAZOLE [Concomitant]
     Dosage: 40 MG, QD
     Dates: start: 20080101
  9. BACLOFEN [Concomitant]
     Dosage: 10 MG, QD
     Dates: start: 20090101
  10. ZOLPIDEM [Concomitant]
     Dosage: 10 MG, QD
     Dates: start: 19990101
  11. FOSAMAX [Concomitant]
     Dosage: 70 MG, QW
     Dates: start: 20080101
  12. KLOR-CON [Concomitant]
     Dosage: 10 MEQ, QD
     Dates: start: 20070101

REACTIONS (4)
  - BALANCE DISORDER [None]
  - DEVICE CONNECTION ISSUE [None]
  - FALL [None]
  - PARKINSON'S DISEASE [None]
